FAERS Safety Report 6230720-8 (Version None)
Quarter: 2009Q2

REPORT INFORMATION
  Report Type: 
  Country: None (occurrence: None)
  Receive Date: 20090611
  Receipt Date: 20090528
  Transmission Date: 20091009
  Serious: Yes (Hospitalization, Other)
  Sender: FDA-Public Use
  Company Number: TPH-00038

PATIENT
  Age: 36 Year
  Sex: Female

DRUGS (4)
  1. TRIQUILAR [Suspect]
     Indication: ORAL CONTRACEPTION
     Dosage: ORAL
     Route: 048
     Dates: start: 20070901, end: 20080301
  2. DICLOFENAC (DICLOFENAC [DICLOFENAC]) [Concomitant]
  3. CEPHALEXIN [Concomitant]
  4. ACETAMINOPHEN [Concomitant]

REACTIONS (8)
  - DRUG EXPOSURE DURING PREGNANCY [None]
  - DRUG INEFFECTIVE [None]
  - HEADACHE [None]
  - INFERTILITY FEMALE [None]
  - PRE-ECLAMPSIA [None]
  - PREGNANCY ON ORAL CONTRACEPTIVE [None]
  - SWELLING [None]
  - VOMITING [None]
